FAERS Safety Report 18549909 (Version 4)
Quarter: 2025Q2

REPORT INFORMATION
  Report Type: Report from Study
  Country: US (occurrence: US)
  Receive Date: 20201126
  Receipt Date: 20250404
  Transmission Date: 20250716
  Serious: No
  Sender: KYOWA
  Company Number: US-KYOWAKIRIN-2020BKK020150

PATIENT

DRUGS (5)
  1. BUROSUMAB [Suspect]
     Active Substance: BUROSUMAB
     Indication: Hereditary hypophosphataemic rickets
     Dosage: 50 MG, 1X/MONTH (ONE VIAL OF 20 MG AND ONE VIAL OF 30 MG, UNDER THE SKIN)
     Route: 058
  2. BUROSUMAB [Suspect]
     Active Substance: BUROSUMAB
     Indication: Hereditary hypophosphataemic rickets
  3. BUROSUMAB [Suspect]
     Active Substance: BUROSUMAB
     Indication: Hereditary hypophosphataemic rickets
     Dosage: 50 MG, 1X/MONTH (ONE VIAL OF 20 MG AND ONE VIAL OF 30 MG, UNDER THE SKIN)
     Route: 058
  4. BUROSUMAB [Suspect]
     Active Substance: BUROSUMAB
     Indication: Hereditary hypophosphataemic rickets
  5. BUROSUMAB [Suspect]
     Active Substance: BUROSUMAB
     Indication: Hereditary hypophosphataemic rickets
     Dosage: UNK, 1X/4 WEEKS (ONCE EVERY 28 DAYS)
     Route: 065

REACTIONS (7)
  - Bone density decreased [Unknown]
  - Bone pain [Not Recovered/Not Resolved]
  - Spinal pain [Unknown]
  - Back pain [Unknown]
  - Pain [Unknown]
  - Pain [Unknown]
  - Nausea [Unknown]

NARRATIVE: CASE EVENT DATE: 20200101
